FAERS Safety Report 6024479-7 (Version None)
Quarter: 2008Q4

REPORT INFORMATION
  Report Type: 
  Country: None (occurrence: None)
  Receive Date: 20081231
  Receipt Date: 20080903
  Transmission Date: 20090506
  Serious: No
  Sender: FDA-Public Use
  Company Number: US-BRISTOL-MYERS SQUIBB COMPANY-14323695

PATIENT
  Age: 77 Year
  Sex: Female

DRUGS (1)
  1. ORENCIA [Suspect]
     Indication: RHEUMATOID ARTHRITIS
     Dosage: CHANGED FROM REMICADE TO ORENCIA 750MG. NEXT DOSE OF ORENCIA SCHEDULED ON 11-SEP-08.
     Dates: start: 20080828

REACTIONS (3)
  - FEELING ABNORMAL [None]
  - FEELING JITTERY [None]
  - INSOMNIA [None]
